FAERS Safety Report 19373032 (Version 1)
Quarter: 2021Q2

REPORT INFORMATION
  Report Type: Spontaneous
  Country: US (occurrence: US)
  Receive Date: 20210604
  Receipt Date: 20210604
  Transmission Date: 20210717
  Serious: No
  Sender: FDA-Public Use
  Company Number: None

PATIENT
  Age: 25 Year
  Sex: Female
  Weight: 58.97 kg

DRUGS (1)
  1. KCHILL KRATOM SHOT [Suspect]
     Active Substance: HERBALS\MITRAGYNINE
     Indication: SUBSTANCE USE
     Dosage: ?          OTHER STRENGTH:2 OZ;OTHER DOSE:2 OZ;?
     Route: 048
     Dates: start: 20210531, end: 20210531

REACTIONS (1)
  - Product quality issue [None]
